FAERS Safety Report 5905757-6 (Version None)
Quarter: 2008Q4

REPORT INFORMATION
  Report Type: 
  Country: None (occurrence: None)
  Receive Date: 20081002
  Receipt Date: 20080926
  Transmission Date: 20090506
  Serious: Yes (Death, Hospitalization)
  Sender: FDA-Public Use
  Company Number: A0715886A

PATIENT
  Age: 56 Year
  Sex: Male
  Weight: 76.4 kg

DRUGS (6)
  1. AVANDIA [Suspect]
     Indication: DIABETES MELLITUS
     Dosage: 4MG PER DAY
     Route: 048
     Dates: start: 19980101, end: 20000101
  2. ZOCOR [Concomitant]
  3. CLONAZEPAM [Concomitant]
  4. LEVOTAB [Concomitant]
  5. REZULIN [Concomitant]
  6. ZOLOFT [Concomitant]

REACTIONS (3)
  - CARDIAC FAILURE [None]
  - CARDIOVASCULAR DISORDER [None]
  - MYOCARDIAL INFARCTION [None]
